FAERS Safety Report 4875486-9 (Version None)
Quarter: 2006Q1

REPORT INFORMATION
  Report Type: 
  Country: None (occurrence: None)
  Receive Date: 20060109
  Receipt Date: 20050420
  Transmission Date: 20060701
  Serious: Yes (Hospitalization)
  Sender: FDA-Public Use
  Company Number: TW-BRISTOL-MYERS SQUIBB COMPANY-12947529

PATIENT
  Age: 56 Year
  Sex: Male

DRUGS (3)
  1. CETUXIMAB [Suspect]
     Indication: NON-SMALL CELL LUNG CANCER
     Dosage: MOST RECENT CETUXIMAB INFUSION ADMINISTERED ON 11-APR-2005. ON 19-APR-2005 CETUXIMAB DELAYED.
     Route: 041
     Dates: start: 20050308
  2. CISPLATIN [Suspect]
     Indication: NON-SMALL CELL LUNG CANCER
     Dosage: MOST RECENT CISPLATIN INFUSION ADMINISTERED ON 11-APR-2005. CISPLATIN DOSE REDUCED.
     Route: 042
     Dates: start: 20050308
  3. VINORELBINE TARTRATE [Suspect]
     Indication: NON-SMALL CELL LUNG CANCER
     Dosage: MOST RECENT VINORELBINE INFUSION ADMINISTERED ON 11-APR-2005. ON 19-APR-2005 VINORELBINE DELAYED.
     Dates: start: 20050308

REACTIONS (1)
  - PYREXIA [None]
